FAERS Safety Report 20124562 (Version 1)
Quarter: 2021Q4

REPORT INFORMATION
  Report Type: Report from Study
  Country: CN (occurrence: None)
  Receive Date: 20211129
  Receipt Date: 20211129
  Transmission Date: 20220303
  Serious: Yes (Hospitalization)
  Sender: FDA-Public Use
  Company Number: CN-ROCHE-2962433

PATIENT
  Age: 14 Year
  Sex: Female
  Weight: 31 kg

DRUGS (2)
  1. RISDIPLAM [Suspect]
     Active Substance: RISDIPLAM
     Indication: Spinal muscular atrophy
     Dosage: ON 23/JUN/2021, SHE RECEIVED LAST DOSE (6.5 ML) OF RISDIPLAM PRIOR TO SAE/AE
     Route: 048
  2. RISDIPLAM [Suspect]
     Active Substance: RISDIPLAM
     Indication: Spinal muscular atrophy
     Dosage: ON 23/JUN/2021, SHE RECEIVED LAST DOSE OF RISDIPLAM PRIOR TO SAE/AE
     Route: 048
     Dates: start: 20180628

REACTIONS (1)
  - Metabolic acidosis [Recovered/Resolved]

NARRATIVE: CASE EVENT DATE: 20210623
